FAERS Safety Report 10477265 (Version 1)
Quarter: 2014Q3

REPORT INFORMATION
  Report Type: Spontaneous
  Country: CA (occurrence: None)
  Receive Date: 20140923
  Receipt Date: 20140923
  Transmission Date: 20150326
  Serious: Yes (Other)
  Sender: FDA-Public Use
  Company Number: CA-017118

PATIENT
  Age: 76 Year
  Sex: Male

DRUGS (3)
  1. FIRMAGON [Suspect]
     Active Substance: DEGARELIX ACETATE
     Indication: PROSTATE CANCER
     Route: 058
     Dates: start: 20140529
  2. RAMIPRIL. [Concomitant]
     Active Substance: RAMIPRIL
  3. HERBAL [Concomitant]

REACTIONS (1)
  - Radiotherapy [None]

NARRATIVE: CASE EVENT DATE: 20140915
